FAERS Safety Report 18617741 (Version 2)
Quarter: 2021Q1

REPORT INFORMATION
  Report Type: Spontaneous
  Country: IL (occurrence: IL)
  Receive Date: 20201215
  Receipt Date: 20210303
  Transmission Date: 20210419
  Serious: Yes (Other)
  Sender: FDA-Public Use
  Company Number: IL-BAYER-2020-271284

PATIENT
  Sex: Female

DRUGS (4)
  1. GLUCOMINE [ASCORBIC ACID;GLUCOSAMINE SULFATE] [Concomitant]
     Indication: HIRSUTISM
  2. GLUCOMINE [ASCORBIC ACID;GLUCOSAMINE SULFATE] [Concomitant]
     Indication: MENSTRUAL DISORDER
  3. MIRENA [Suspect]
     Active Substance: LEVONORGESTREL
     Indication: MENORRHAGIA
     Dosage: 20?G PER DAY, CONTINUOUSLY
     Route: 015
     Dates: start: 2017, end: 2020
  4. GLUCOMINE [ASCORBIC ACID;GLUCOSAMINE SULFATE] [Concomitant]
     Indication: POLYCYSTIC OVARIES

REACTIONS (5)
  - Hirsutism [None]
  - Idiopathic intracranial hypertension [Recovering/Resolving]
  - Headache [Recovering/Resolving]
  - Papilloedema [Recovering/Resolving]
  - Amenorrhoea [Recovered/Resolved]

NARRATIVE: CASE EVENT DATE: 202006
